FAERS Safety Report 5562944-7 (Version None)
Quarter: 2007Q4

REPORT INFORMATION
  Report Type: 
  Country: None (occurrence: None)
  Receive Date: 20071217
  Receipt Date: 20071206
  Transmission Date: 20080405
  Serious: Yes (Other)
  Sender: FDA-Public Use
  Company Number: JP-BAYER-200710998BYL

PATIENT
  Age: 72 Year
  Sex: Male

DRUGS (1)
  1. ASPIRIN [Suspect]
     Route: 048
     Dates: start: 20060901, end: 20070101

REACTIONS (1)
  - LIVER DISORDER [None]
